FAERS Safety Report 19261809 (Version 2)
Quarter: 2021Q3

REPORT INFORMATION
  Report Type: Report from Study
  Country: CA (occurrence: CA)
  Receive Date: 20210515
  Receipt Date: 20210708
  Transmission Date: 20211014
  Serious: Yes (Other)
  Sender: FDA-Public Use
  Company Number: PHHY2019CA103238

PATIENT
  Age: 64 Year
  Sex: Female

DRUGS (3)
  1. SANDOSTATIN LAR DEPOT [Suspect]
     Active Substance: OCTREOTIDE ACETATE
     Indication: CARCINOID TUMOUR
     Dosage: 30 MG, QMO (EVERY 4 WEEKS)
     Route: 030
     Dates: start: 20190305
  2. SANDOSTATIN LAR DEPOT [Suspect]
     Active Substance: OCTREOTIDE ACETATE
  3. SANDOSTATIN LAR DEPOT [Suspect]
     Active Substance: OCTREOTIDE ACETATE

REACTIONS (11)
  - Neutrophil count decreased [Unknown]
  - Skin discolouration [Unknown]
  - Weight increased [Unknown]
  - Lethargy [Unknown]
  - Blood pressure increased [Unknown]
  - Petechiae [Unknown]
  - Rash [Unknown]
  - Hypometabolism [Unknown]
  - Abdominal pain upper [Unknown]
  - Hypophagia [Unknown]
  - Nausea [Unknown]

NARRATIVE: CASE EVENT DATE: 2019
